FAERS Safety Report 21859090 (Version 2)
Quarter: 2023Q1

REPORT INFORMATION
  Report Type: Spontaneous
  Country: US (occurrence: US)
  Receive Date: 20230113
  Receipt Date: 20230220
  Transmission Date: 20230417
  Serious: No
  Sender: FDA-Public Use
  Company Number: US-BIOVITRUM-2023US00710

PATIENT
  Sex: Male
  Weight: 10 kg

DRUGS (20)
  1. SYNAGIS [Suspect]
     Active Substance: PALIVIZUMAB
     Indication: Immunodeficiency
     Dates: start: 20221122
  2. ONDANSETRON HCL [Concomitant]
     Active Substance: ONDANSETRON HYDROCHLORIDE
     Dosage: 4 MG/5 ML SOLUTION
  3. SIMETHICONE (DIMETHICONE) [Concomitant]
     Active Substance: DIMETHICONE
     Dosage: 40MG/0.6ML DROPS SUSP
  4. FLUCONAZOLE [Concomitant]
     Active Substance: FLUCONAZOLE
     Dosage: 40 MG/ML SUSP RECON
  5. GAMMAGARD [Concomitant]
     Active Substance: HUMAN IMMUNOGLOBULIN G
     Dosage: GAMMAGARD LIQUID
  6. ACYCLOVIR [Concomitant]
     Active Substance: ACYCLOVIR
     Dosage: 200 MG/5ML ORAL SUSP
  7. KATERZIA [Concomitant]
     Active Substance: AMLODIPINE BENZOATE
  8. SYNAGIS [Suspect]
     Active Substance: PALIVIZUMAB
     Indication: Graft versus host disease
  9. METHADONE [Concomitant]
     Active Substance: METHADONE HYDROCHLORIDE
  10. JAKAFI [Concomitant]
     Active Substance: RUXOLITINIB
  11. SYNAGIS [Suspect]
     Active Substance: PALIVIZUMAB
     Indication: Bone marrow transplant
  12. AZITHROMYCIN [Concomitant]
     Active Substance: AZITHROMYCIN
  13. SYNAGIS [Suspect]
     Active Substance: PALIVIZUMAB
     Indication: Low birth weight baby
  14. VORICONAZOLE [Concomitant]
     Active Substance: VORICONAZOLE
  15. ALBUTEROL SULFATE [Concomitant]
     Active Substance: ALBUTEROL SULFATE
  16. SYNAGIS [Suspect]
     Active Substance: PALIVIZUMAB
     Indication: Premature baby
  17. SULFAMETHOXAZOLE\TRIMETHOPRIM [Concomitant]
     Active Substance: SULFAMETHOXAZOLE\TRIMETHOPRIM
  18. CLONIDINE [Concomitant]
     Active Substance: CLONIDINE
  19. MONTELUKAST [Concomitant]
     Active Substance: MONTELUKAST SODIUM
  20. ORENCIA [Concomitant]
     Active Substance: ABATACEPT

REACTIONS (3)
  - Nasopharyngitis [Unknown]
  - Rhinovirus infection [Unknown]
  - COVID-19 [Unknown]
